FAERS Safety Report 16939519 (Version 4)
Quarter: 2021Q2

REPORT INFORMATION
  Report Type: Report from Study
  Country: US (occurrence: US)
  Receive Date: 20191021
  Receipt Date: 20210614
  Transmission Date: 20210716
  Serious: Yes (Hospitalization)
  Sender: FDA-Public Use
  Company Number: US-ROCHE-2436745

PATIENT
  Age: 72 Year
  Sex: Female
  Weight: 72.3 kg

DRUGS (5)
  1. ATEZOLIZUMAB. [Suspect]
     Active Substance: ATEZOLIZUMAB
     Indication: HEPATOCELLULAR CARCINOMA
     Dosage: MOST RECENT DOSE RECEIVED ON 11/SEP/2019
     Route: 042
     Dates: start: 20190821, end: 20190914
  2. FAMOTIDINE. [Concomitant]
     Active Substance: FAMOTIDINE
  3. LORAZEPAM. [Concomitant]
     Active Substance: LORAZEPAM
  4. AMLODIPINE BESILATE [Concomitant]
     Active Substance: AMLODIPINE BESYLATE
  5. XL184 [Suspect]
     Active Substance: CABOZANTINIB
     Indication: HEPATOCELLULAR CARCINOMA
     Dosage: MOST RECENT DOSE RECEIVED ON 14/SEP/2019
     Route: 048
     Dates: start: 20190821, end: 20190914

REACTIONS (3)
  - Dizziness [Recovered/Resolved]
  - Palmar-plantar erythrodysaesthesia syndrome [Recovering/Resolving]
  - Muscular weakness [Recovered/Resolved]

NARRATIVE: CASE EVENT DATE: 20190830
